FAERS Safety Report 6162920-X (Version None)
Quarter: 2009Q2

REPORT INFORMATION
  Report Type: 
  Country: None (occurrence: None)
  Receive Date: 20090421
  Receipt Date: 20090209
  Transmission Date: 20091009
  Serious: No
  Sender: FDA-Public Use
  Company Number: US-ASTRAZENECA-2009UW03840

PATIENT
  Sex: Male
  Weight: 97.5 kg

DRUGS (4)
  1. METOPROLOL SUCCINATE [Suspect]
     Route: 048
  2. COZAAR [Concomitant]
  3. AVODART [Concomitant]
  4. FOLBIC [Concomitant]

REACTIONS (3)
  - BLOOD PRESSURE INCREASED [None]
  - DYSPNOEA [None]
  - HEART RATE INCREASED [None]
